FAERS Safety Report 7866895-4 (Version None)
Quarter: 2011Q4

REPORT INFORMATION
  Report Type: 
  Country: None (occurrence: None)
  Receive Date: 20111028
  Receipt Date: 20111021
  Transmission Date: 20120403
  Serious: Yes (Other)
  Sender: FDA-Public Use
  Company Number: US-ABBOTT-11P-163-0867556-00

PATIENT
  Sex: Male
  Weight: 79.45 kg

DRUGS (14)
  1. METHOTREXATE [Concomitant]
     Indication: RHEUMATOID ARTHRITIS
  2. PERCOCET [Concomitant]
     Indication: PAIN
  3. DOCUSATE [Concomitant]
     Indication: PRODUCT USED FOR UNKNOWN INDICATION
  4. METOPROLOL TARTRATE [Concomitant]
     Indication: HYPERTENSION
  5. OXYBUTYNIN [Concomitant]
     Indication: URINARY INCONTINENCE
  6. GABAPENTIN [Concomitant]
     Indication: PAIN
  7. ZANTAC [Concomitant]
     Indication: GASTROOESOPHAGEAL REFLUX DISEASE
  8. CALCIUM WITH VITAMIN D [Concomitant]
     Indication: OSTEOPOROSIS
  9. FOLIC ACID [Concomitant]
     Indication: RHEUMATOID ARTHRITIS
  10. VITAMIN B-12 [Concomitant]
     Indication: PRODUCT USED FOR UNKNOWN INDICATION
     Route: 058
  11. IRON [Concomitant]
     Indication: MINERAL SUPPLEMENTATION
  12. HUMIRA [Suspect]
     Indication: RHEUMATOID ARTHRITIS
     Route: 058
     Dates: start: 20030501
  13. LEVOTHYROXINE SODIUM [Concomitant]
     Indication: HYPOTHYROIDISM
  14. TERIPARATIDE [Concomitant]
     Indication: OSTEOPOROSIS
     Route: 058

REACTIONS (1)
  - AORTIC VALVE STENOSIS [None]
